FAERS Safety Report 12250220 (Version 1)
Quarter: 2016Q2

REPORT INFORMATION
  Report Type: Report from Study
  Country: US (occurrence: US)
  Receive Date: 20160408
  Receipt Date: 20160408
  Transmission Date: 20160815
  Serious: Yes (Hospitalization)
  Sender: FDA-Public Use
  Company Number: US-JNJFOC-20151108357

PATIENT
  Age: 65 Year
  Sex: Male
  Weight: 127 kg

DRUGS (26)
  1. XARELTO [Concomitant]
     Active Substance: RIVAROXABAN
  2. ADVIL [Concomitant]
     Active Substance: IBUPROFEN
     Indication: PAIN
     Dosage: AS NEEDED. TAKE WITH FOOD OR MILK.
     Route: 048
  3. PANTOPRAZOLE [Concomitant]
     Active Substance: PANTOPRAZOLE SODIUM
     Dosage: DELAYED RELEASE TABLET
     Route: 048
  4. ROXICODONE [Concomitant]
     Active Substance: OXYCODONE HYDROCHLORIDE
     Indication: PAIN
     Dosage: AS NEEDED. IT WAS REPORTED ON 01-OCT-2015 THAT THE SUBJECT IS NOT TAKING THIS MEDICATION.
     Route: 048
  5. PRILOSEC [Concomitant]
     Active Substance: OMEPRAZOLE MAGNESIUM
     Dosage: AS NEEDED. DELAYED RELEASE CAPSULES.
     Route: 048
  6. MOTRIN [Concomitant]
     Active Substance: IBUPROFEN
     Indication: PAIN
     Dosage: AS NEEDED. TAKE WITH FOOD OR MILK.
     Route: 048
  7. FIBERCON [Concomitant]
     Active Substance: CALCIUM POLYCARBOPHIL
     Dosage: AS NEEDED. TAKE EACH DOSE WITH 8 OZ OF??WATER.
     Route: 048
  8. ILEVRO [Concomitant]
     Active Substance: NEPAFENAC
     Dosage: 0.3 % OPHTHALMIC SUSPENSION
     Route: 047
  9. TRABECTEDIN [Suspect]
     Active Substance: TRABECTEDIN
     Route: 042
  10. KLONOPIN [Concomitant]
     Active Substance: CLONAZEPAM
     Dosage: AS NEEDED
     Route: 048
  11. GLUCOTROL [Concomitant]
     Active Substance: GLIPIZIDE
     Dosage: EXTENDED RELEASE 24 HOUR TABLET
  12. ASPIRIN. [Concomitant]
     Active Substance: ASPIRIN
     Route: 048
  13. DUREZOL [Concomitant]
     Active Substance: DIFLUPREDNATE
     Dosage: 0.05% OPHTHALMIC EMULSION
     Route: 047
  14. ALBUTEROL. [Concomitant]
     Active Substance: ALBUTEROL
     Dosage: INHALE INTO LUNGS DAILY
  15. BESIVANCE [Concomitant]
     Active Substance: BESIFLOXACIN
     Dosage: 0.6 % OPHTHALMIC SUSPENSION
     Route: 047
  16. GLUCOPHAGE [Concomitant]
     Active Substance: METFORMIN HYDROCHLORIDE
     Route: 048
  17. FERROUS SULFATE. [Concomitant]
     Active Substance: FERROUS SULFATE
     Route: 048
  18. NORCO [Concomitant]
     Active Substance: ACETAMINOPHEN\HYDROCODONE BITARTRATE
     Dosage: AS NEEDED. IT WAS REPORTED ON 01-OCT-2015 THAT THE SUBJECT IS NOT TAKING THIS MEDICATION.
     Route: 048
  19. COMPAZINE [Concomitant]
     Active Substance: PROCHLORPERAZINE MALEATE
     Indication: NAUSEA
     Dosage: AS NEEDED. IT WAS REPORTED ON 05-NOV-2015 THAT THE SUBJECT IS NOT TAKING THIS MEDICATION.
     Route: 048
  20. ONGLYZA [Concomitant]
     Active Substance: SAXAGLIPTIN HYDROCHLORIDE
     Route: 048
  21. CLARITINE [Concomitant]
     Active Substance: LORATADINE
     Route: 048
  22. FLONASE [Concomitant]
     Active Substance: FLUTICASONE PROPIONATE
     Route: 045
  23. TRABECTEDIN [Suspect]
     Active Substance: TRABECTEDIN
     Indication: SARCOMA METASTATIC
     Route: 042
     Dates: start: 20151015, end: 20151016
  24. TYLENOL [Concomitant]
     Active Substance: ACETAMINOPHEN
     Dosage: AS NEEDED
     Route: 048
  25. ZOFRAN [Concomitant]
     Active Substance: ONDANSETRON HYDROCHLORIDE
     Indication: NAUSEA
     Dosage: AS NEEDED. IT WAS REPORTED ON 05-NOV-2015 THAT THE SUBJECT IS NOT TAKING THIS MEDICATION
     Route: 048
  26. COMPAZINE [Concomitant]
     Active Substance: PROCHLORPERAZINE MALEATE
     Indication: VOMITING
     Dosage: AS NEEDED. IT WAS REPORTED ON 05-NOV-2015 THAT THE SUBJECT IS NOT TAKING THIS MEDICATION.
     Route: 048

REACTIONS (1)
  - Pleural effusion [Unknown]

NARRATIVE: CASE EVENT DATE: 20151105
